FAERS Safety Report 7914567 (Version 3)
Quarter: 2012Q4

REPORT INFORMATION
  Report Type: 
  Country: GB (occurrence: GB)
  Receive Date: 20110426
  Receipt Date: 20121003
  Transmission Date: 20130627
  Serious: Yes (Other)
  Sender: FDA-Public Use
  Company Number: PHFR2011GB02400

PATIENT
  Age: 50 Year
  Sex: Male

DRUGS (2)
  1. CLOZARIL [Suspect]
     Indication: SCHIZOPHRENIA
     Route: 048
     Dates: start: 20110301, end: 20110415
  2. CLOZARIL [Suspect]
     Dates: start: 20110927

REACTIONS (3)
  - Differential white blood cell count abnormal [Unknown]
  - Eosinophil count increased [Unknown]
  - Pain in extremity [Unknown]
